FAERS Safety Report 8657272 (Version 5)
Quarter: 2013Q1

REPORT INFORMATION
  Report Type: Spontaneous
  Country: US (occurrence: US)
  Receive Date: 20120710
  Receipt Date: 20130305
  Transmission Date: 20140127
  Serious: No
  Sender: FDA-Public Use
  Company Number: US-BIOGENIDEC-2012BI023283

PATIENT
  Age: 48 None
  Sex: Female

DRUGS (1)
  1. TYSABRI [Suspect]
     Indication: MULTIPLE SCLEROSIS
     Route: 042
     Dates: start: 20120625

REACTIONS (17)
  - Influenza like illness [Recovered/Resolved]
  - Visual impairment [Recovered/Resolved]
  - Post procedural infection [Recovered/Resolved]
  - Anxiety [Not Recovered/Not Resolved]
  - Stress [Not Recovered/Not Resolved]
  - Vertigo [Recovered/Resolved]
  - Endodontic procedure [Recovered/Resolved]
  - Joint swelling [Unknown]
  - Pain [Recovered/Resolved]
  - Musculoskeletal stiffness [Recovered/Resolved]
  - Decreased appetite [Recovered/Resolved]
  - Feeling abnormal [Recovered/Resolved]
  - Pain in extremity [Not Recovered/Not Resolved]
  - Somnolence [Not Recovered/Not Resolved]
  - Arthralgia [Not Recovered/Not Resolved]
  - Tooth infection [Recovered/Resolved]
  - Chills [Recovered/Resolved]
